FAERS Safety Report 19770320 (Version 3)
Quarter: 2021Q3

REPORT INFORMATION
  Report Type: Spontaneous
  Country: US (occurrence: US)
  Receive Date: 20210831
  Receipt Date: 20210920
  Transmission Date: 20211014
  Serious: No
  Sender: FDA-Public Use
  Company Number: US-ORGANON-O2108USA001269

PATIENT
  Age: 31 Year
  Sex: Female

DRUGS (1)
  1. NEXPLANON [Suspect]
     Active Substance: ETONOGESTREL
     Indication: CONTRACEPTION
     Dosage: 1 IMPLANT OF 68 MILLIGRAM, EVERY 3 YEARS
     Route: 059
     Dates: start: 20210810, end: 20210817

REACTIONS (5)
  - Paraesthesia [Recovered/Resolved]
  - Pain [Recovered/Resolved]
  - Device placement issue [Recovered/Resolved]
  - Contusion [Recovered/Resolved]
  - Implant site hypoaesthesia [Recovered/Resolved]

NARRATIVE: CASE EVENT DATE: 20210810
